FAERS Safety Report 5121542-X (Version None)
Quarter: 2006Q4

REPORT INFORMATION
  Report Type: 
  Country: None (occurrence: None)
  Receive Date: 20061006
  Receipt Date: 20061002
  Transmission Date: 20070319
  Serious: Yes (Life-Threatening, Hospitalization)
  Sender: FDA-Public Use
  Company Number: GB-SOLVAY-00306003201

PATIENT
  Age: 62 Year
  Sex: Male

DRUGS (4)
  1. GARLIC [Concomitant]
     Indication: ILL-DEFINED DISORDER
     Dosage: DAILY DOSE:  UNKNOWN
     Route: 048
  2. TESTOSTERONE [Suspect]
     Indication: PRIMARY HYPOGONADISM
     Dosage: DAILY DOSE: 50 MILLIGRAM(S)
     Route: 058
     Dates: start: 20060531, end: 20060802
  3. GLUCOSAMINE SULPHATE [Concomitant]
     Indication: ILL-DEFINED DISORDER
     Dosage: DAILY DOSE:  UNKNOWN
     Route: 065
  4. OMEGA 3 FISH OIL [Concomitant]
     Indication: ILL-DEFINED DISORDER
     Dosage: DAILY DOSE:  UNKNOWN
     Route: 065

REACTIONS (1)
  - BREAST CANCER MALE [None]
